FAERS Safety Report 5345207-4 (Version None)
Quarter: 2007Q2

REPORT INFORMATION
  Report Type: 
  Country: None (occurrence: None)
  Receive Date: 20070423
  Receipt Date: 20060623
  Transmission Date: 20071010
  Serious: Yes (Life-Threatening)
  Sender: FDA-Public Use
  Company Number: WAES 0606USA04491

PATIENT
  Age: 64 Year
  Sex: Female
  Weight: 63.5036 kg

DRUGS (5)
  1. SINGULAIR [Suspect]
     Indication: ASTHMA
     Dosage: SEE IMAGE
     Route: 048
     Dates: start: 20060301, end: 20060602
  2. SINGULAIR [Suspect]
     Indication: ASTHMA
     Dosage: SEE IMAGE
     Route: 048
     Dates: start: 20060603, end: 20060603
  3. SINGULAIR [Suspect]
     Indication: ASTHMA
     Dosage: SEE IMAGE
     Route: 048
     Dates: start: 20060604, end: 20060605
  4. CLARINEX [Concomitant]
  5. NASONEX [Concomitant]

REACTIONS (2)
  - OVERDOSE [None]
  - SOMNOLENCE [None]
